FAERS Safety Report 17045537 (Version 1)
Quarter: 2019Q4

REPORT INFORMATION
  Report Type: Other
  Country: US (occurrence: US)
  Receive Date: 20191118
  Receipt Date: 20191118
  Transmission Date: 20200122
  Serious: No
  Sender: FDA-Public Use
  Company Number: US-LEADIANT BIOSCIENCES INC-2019STPI000131

PATIENT

DRUGS (24)
  1. CALCIUM [Concomitant]
     Active Substance: CALCIUM
  2. DOXAZOSIN [Concomitant]
     Active Substance: DOXAZOSIN MESYLATE
  3. IRON [Concomitant]
     Active Substance: IRON
  4. CYSTARAN [Suspect]
     Active Substance: CYSTEAMINE HYDROCHLORIDE
     Indication: CYSTINOSIS
     Dosage: UNK, QD
     Route: 047
     Dates: start: 20160823
  5. COENZYME [Concomitant]
     Active Substance: UBIDECARENONE
  6. LEVOTHYROXIN [Concomitant]
     Active Substance: LEVOTHYROXINE
  7. MULTIVITAMINUM [Concomitant]
     Active Substance: VITAMINS
  8. PEPCID [Concomitant]
     Active Substance: FAMOTIDINE
  9. BUPROPION. [Concomitant]
     Active Substance: BUPROPION
  10. VITAMIN D3 [Concomitant]
     Active Substance: CHOLECALCIFEROL
  11. OMEGA 3 [DOCOSAHEXAENOIC ACID;EICOSAPENTAENOIC ACID;TOCOPHEROL] [Concomitant]
     Active Substance: DOCONEXENT\ICOSAPENT\TOCOPHEROL
  12. PROCYSBI [Concomitant]
     Active Substance: CYSTEAMINE BITARTRATE
  13. AMITRIPTYLIN [Concomitant]
     Active Substance: AMITRIPTYLINE
  14. SIROLIMUS. [Concomitant]
     Active Substance: SIROLIMUS
  15. AMLODIPINE [Concomitant]
     Active Substance: AMLODIPINE BESYLATE
  16. L-CARNITINE [LEVOCARNITINE] [Concomitant]
  17. MYCOPHENOLATE [Concomitant]
     Active Substance: MYCOPHENOLIC ACID
  18. PROPRANOLOL [Concomitant]
     Active Substance: PROPRANOLOL HYDROCHLORIDE
  19. ENZYME [Concomitant]
  20. MIRTAZAPINE. [Concomitant]
     Active Substance: MIRTAZAPINE
  21. LOSARTAN. [Concomitant]
     Active Substance: LOSARTAN
  22. PREDNISONE. [Suspect]
     Active Substance: PREDNISONE
  23. RISPERIDONE. [Concomitant]
     Active Substance: RISPERIDONE
  24. B50 [Concomitant]

REACTIONS (1)
  - Eye irritation [Not Recovered/Not Resolved]
